FAERS Safety Report 5537612-8 (Version None)
Quarter: 2007Q4

REPORT INFORMATION
  Report Type: 
  Country: None (occurrence: None)
  Receive Date: 20071207
  Receipt Date: 20071129
  Transmission Date: 20080405
  Serious: Yes (Hospitalization)
  Sender: FDA-Public Use
  Company Number: CA-ASTRAZENECA-2007UW27461

PATIENT
  Age: 8 Year
  Sex: Male

DRUGS (2)
  1. SEROQUEL [Suspect]
     Indication: ABNORMAL BEHAVIOUR
     Route: 048
  2. SEROQUEL [Suspect]
     Route: 048

REACTIONS (3)
  - ILL-DEFINED DISORDER [None]
  - TIC [None]
  - VOMITING [None]
